FAERS Safety Report 22111860 (Version 2)
Quarter: 2023Q1

REPORT INFORMATION
  Report Type: Spontaneous
  Country: GB (occurrence: GB)
  Receive Date: 20230318
  Receipt Date: 20230327
  Transmission Date: 20230418
  Serious: Yes (Other)
  Sender: FDA-Public Use
  Company Number: GB-TAKEDA-2023TUS023035

PATIENT
  Age: 19 Year
  Sex: Female

DRUGS (4)
  1. DOXORUBICIN [Suspect]
     Active Substance: DOXORUBICIN
     Indication: Anaplastic large-cell lymphoma
     Dosage: UNK; THERAPY END DATE  : NASK, ON 18-JAN-2023, THE PATIENT RECEIVED THE LAST DOSE OF DOXORUBICINE .
     Route: 050
     Dates: start: 20221206
  2. BRENTUXIMAB VEDOTIN [Suspect]
     Active Substance: BRENTUXIMAB VEDOTIN
     Indication: Anaplastic large-cell lymphoma
     Dosage: UNK; THERAPY END DATE : NASK, ON 18-JAN-2023, THE PATIENT RECEIVED THE LAST DOSE OF BRENTUXIMAB VEDO
     Route: 050
     Dates: start: 20221206
  3. CYCLOPHOSPHAMIDE [Suspect]
     Active Substance: CYCLOPHOSPHAMIDE
     Indication: Anaplastic large-cell lymphoma
     Dosage: UNK; THERAPY END DATE  : NASK, ON 18-JAN-2023, THE PATIENT RECEIVED THE LAST DOSE OF CYCLOPHOSPHAMID
     Route: 050
     Dates: start: 20221206
  4. PREDNISONE [Suspect]
     Active Substance: PREDNISONE
     Indication: Anaplastic large-cell lymphoma
     Dosage: UNK; THERAPY END DATE :  NASK, ON 18-JAN-2023, THE PATIENT RECEIVED THE LAST DOSE OF PREDNISONE.
     Route: 050
     Dates: start: 20221206

REACTIONS (1)
  - Anaplastic large-cell lymphoma [Unknown]

NARRATIVE: CASE EVENT DATE: 20230208
